FAERS Safety Report 7030110-4 (Version None)
Quarter: 2010Q4

REPORT INFORMATION
  Report Type: 
  Country: None (occurrence: None)
  Receive Date: 20101006
  Receipt Date: 20100929
  Transmission Date: 20110411
  Serious: Yes (Hospitalization)
  Sender: FDA-Public Use
  Company Number: GR-PFIZER INC-2010123540

PATIENT
  Age: 2 Year
  Sex: Male

DRUGS (2)
  1. ZITHROMAX [Suspect]
     Indication: H1N1 INFLUENZA
     Dosage: 20 MG/KG, UNK
     Route: 048
     Dates: start: 20091201
  2. PONSTAN [Suspect]
     Dosage: UNK
     Route: 048
     Dates: start: 20091201

REACTIONS (3)
  - ABDOMINAL PAIN [None]
  - DIARRHOEA [None]
  - GASTRIC HAEMORRHAGE [None]
